FAERS Safety Report 10027151 (Version 2)
Quarter: 2014Q1

REPORT INFORMATION
  Report Type: Spontaneous
  Country: US (occurrence: US)
  Receive Date: 20140321
  Receipt Date: 20140321
  Transmission Date: 20141002
  Serious: No
  Sender: FDA-Public Use
  Company Number: US-MYLANLABS-2013S1021916

PATIENT
  Age: 53 Year
  Sex: Female
  Weight: 99.79 kg

DRUGS (4)
  1. ESTRADIOL TRANSDERMAL SYSTEM, USP [Suspect]
     Indication: UTERINE LEIOMYOMA
     Dosage: WEEKLY
     Route: 062
     Dates: start: 2012, end: 201309
  2. ESTRADIOL TRANSDERMAL SYSTEM, USP [Suspect]
     Indication: OFF LABEL USE
     Dosage: WEEKLY
     Route: 062
     Dates: start: 2012, end: 201309
  3. ESTRADIOL TRANSDERMAL SYSTEM, USP [Suspect]
     Indication: HOT FLUSH
     Dosage: WEEKLY
     Route: 062
     Dates: start: 2012, end: 201309
  4. PROGESTERONE [Concomitant]

REACTIONS (4)
  - Drug effect decreased [Not Recovered/Not Resolved]
  - Hot flush [Not Recovered/Not Resolved]
  - Nausea [Not Recovered/Not Resolved]
  - Application site pruritus [Recovered/Resolved]
